FAERS Safety Report 8459798-8 (Version None)
Quarter: 2012Q2

REPORT INFORMATION
  Report Type: 
  Country: None (occurrence: None)
  Receive Date: 20120622
  Receipt Date: 20120614
  Transmission Date: 20120825
  Serious: Yes (Hospitalization, Other)
  Sender: FDA-Public Use
  Company Number: PHEH2011US012988

PATIENT
  Sex: Female

DRUGS (8)
  1. BACLOFEN [Concomitant]
     Dosage: UNK
  2. LYRICA [Concomitant]
     Dosage: 1 DF, TID
     Route: 048
  3. ATIVAN [Concomitant]
     Dosage: 1 DF, TID
     Route: 048
  4. VENTOLIN [Concomitant]
     Dosage: UNK
  5. MELOXICAM [Concomitant]
     Dosage: 1 DF, BID
     Route: 048
  6. GILENYA [Suspect]
     Indication: MULTIPLE SCLEROSIS
     Dosage: 0.5 MG, QD
     Route: 048
     Dates: start: 20111027
  7. TRAZODONE HCL [Concomitant]
     Dosage: 75 MG, QHS
     Route: 048
  8. ZOLPIDEM [Concomitant]
     Indication: INSOMNIA
     Dosage: 10 MG, UNK
     Route: 048

REACTIONS (17)
  - DYSPNOEA [None]
  - THROMBOSIS [None]
  - PLEURAL EFFUSION [None]
  - EXERCISE TOLERANCE DECREASED [None]
  - HYPOKALAEMIA [None]
  - CHEST DISCOMFORT [None]
  - PULMONARY EMBOLISM [None]
  - GAIT DISTURBANCE [None]
  - PULMONARY ARTERY DILATATION [None]
  - PULMONARY INFARCTION [None]
  - ASTHENIA [None]
  - VISION BLURRED [None]
  - PALPITATIONS [None]
  - ACTIVITIES OF DAILY LIVING IMPAIRED [None]
  - IRON DEFICIENCY ANAEMIA [None]
  - HEADACHE [None]
  - MULTIPLE SCLEROSIS RELAPSE [None]
